FAERS Safety Report 5475794-7 (Version None)
Quarter: 2007Q4

REPORT INFORMATION
  Report Type: 
  Country: None (occurrence: None)
  Receive Date: 20071003
  Receipt Date: 20070927
  Transmission Date: 20080405
  Serious: Yes (Other)
  Sender: FDA-Public Use
  Company Number: A0682743A

PATIENT
  Age: 88 Year
  Sex: Female

DRUGS (9)
  1. COREG [Suspect]
     Dosage: 25MG TWICE PER DAY
     Route: 048
     Dates: start: 20070501
  2. COREG CR [Suspect]
     Route: 048
     Dates: end: 20070501
  3. FUROSEMIDE [Concomitant]
  4. LEVOTHYROXINE SODIUM [Concomitant]
  5. EVISTA [Concomitant]
  6. LISINOPRIL [Concomitant]
  7. ATENOLOL [Concomitant]
  8. WARFARIN SODIUM [Concomitant]
  9. VITAMINS [Concomitant]

REACTIONS (10)
  - ASTHENIA [None]
  - BLEPHAROSPASM [None]
  - BLINDNESS [None]
  - DIARRHOEA [None]
  - DIZZINESS [None]
  - EYE IRRITATION [None]
  - INSOMNIA [None]
  - NAUSEA [None]
  - VISION BLURRED [None]
  - VISUAL ACUITY REDUCED [None]
